FAERS Safety Report 4904465-8 (Version None)
Quarter: 2006Q1

REPORT INFORMATION
  Report Type: 
  Country: None (occurrence: None)
  Receive Date: 20060208
  Receipt Date: 20050908
  Transmission Date: 20060701
  Serious: No
  Sender: FDA-Public Use
  Company Number: US-GLAXOSMITHKLINE-A0573482A

PATIENT
  Age: 46 Year
  Sex: Male

DRUGS (2)
  1. PAXIL [Suspect]
     Dosage: 40MG PER DAY
     Route: 048
     Dates: start: 20040101, end: 20040101
  2. VALIUM [Concomitant]

REACTIONS (2)
  - ABNORMAL BEHAVIOUR [None]
  - RESTLESSNESS [None]
